FAERS Safety Report 10516279 (Version 1)
Quarter: 2014Q4

REPORT INFORMATION
  Report Type: Spontaneous
  Country: US (occurrence: None)
  Receive Date: 20141010
  Receipt Date: 20141010
  Transmission Date: 20150528
  Serious: Yes (Other)
  Sender: FDA-Public Use
  Company Number: None

PATIENT
  Age: 42 Year
  Sex: Female
  Weight: 44.45 kg

DRUGS (1)
  1. VIVELLE DOT [Suspect]
     Active Substance: ESTRADIOL
     Indication: HYSTERECTOMY
     Dosage: 8 PATCHES 2 TIMES A WEEK APPLIED AS MEDICATED PATCH TO SKIN
     Route: 061
     Dates: start: 20141006, end: 20141009

REACTIONS (4)
  - Product quality issue [None]
  - Hot flush [None]
  - Menopausal symptoms [None]
  - Insomnia [None]

NARRATIVE: CASE EVENT DATE: 20141007
